FAERS Safety Report 23321918 (Version 3)
Quarter: 2024Q1

REPORT INFORMATION
  Report Type: Report from Study
  Country: CN (occurrence: CN)
  Receive Date: 20231220
  Receipt Date: 20240124
  Transmission Date: 20240410
  Serious: No
  Sender: FDA-Public Use
  Company Number: CN-PFIZER INC-PV202300204002

PATIENT
  Age: 67 Year
  Sex: Male
  Weight: 65 kg

DRUGS (8)
  1. NIRMATRELVIR\RITONAVIR [Suspect]
     Active Substance: NIRMATRELVIR\RITONAVIR
     Indication: COVID-19
     Dosage: [NIRMATRELVIR 300MG]/[RITONAVIR 100MG], 2X/DAY
     Route: 048
     Dates: start: 20220523, end: 20220604
  2. TERAZOSIN HYDROCHLORIDE [Concomitant]
     Active Substance: TERAZOSIN HYDROCHLORIDE
     Indication: Benign prostatic hyperplasia
     Dosage: UNK
  3. CONPROSTA [Concomitant]
     Indication: Benign prostatic hyperplasia
     Dosage: UNK
  4. HERBALS\MENTHOL [Concomitant]
     Active Substance: HERBALS\MENTHOL
     Indication: COVID-19 treatment
     Dosage: UNK
     Route: 048
     Dates: start: 20220523
  5. LEVOFLOXACIN [Concomitant]
     Active Substance: LEVOFLOXACIN
     Indication: Ophthalmologic treatment
     Dosage: UNK
     Route: 047
     Dates: start: 20220524
  6. AMMONIUM CHLORIDE/GLYCYRRHIZA GLABRA [Concomitant]
     Indication: COVID-19 treatment
     Dosage: UNK, AMMONIUM CHLORIDE LICORICE
     Route: 048
     Dates: start: 20220529
  7. FINASTERIDE [Concomitant]
     Active Substance: FINASTERIDE
     Indication: Benign prostatic hyperplasia
     Dosage: UNK
     Route: 048
     Dates: start: 20220601
  8. OXYGEN [Concomitant]
     Active Substance: OXYGEN
     Indication: COVID-19 treatment
     Dosage: UNK
     Route: 055
     Dates: start: 20220601

REACTIONS (1)
  - Overdose [Unknown]
